FAERS Safety Report 4332584-6 (Version None)
Quarter: 2004Q2

REPORT INFORMATION
  Report Type: 
  Country: None (occurrence: None)
  Receive Date: 20040401
  Receipt Date: 20040322
  Transmission Date: 20050107
  Serious: Yes (Hospitalization)
  Sender: FDA-Public Use
  Company Number: 2004205539SE

PATIENT
  Age: 76 Year
  Sex: Female

DRUGS (8)
  1. PREDNISOLONE [Suspect]
     Indication: BRONCHITIS CHRONIC
     Dosage: 5 MG, QD,
     Dates: start: 20030621, end: 20030701
  2. LEVOFLOXACIN [Suspect]
     Indication: INFECTION
     Dosage: 500 MG, QD,
     Dates: start: 20030714, end: 20030716
  3. TERBUTALINE SULFATE [Concomitant]
  4. BUDESONIDE [Concomitant]
  5. PROPRANOLOL [Concomitant]
  6. IPRATROPIUM BROMIDE [Concomitant]
  7. NICOTINE [Concomitant]
  8. ACETYLCYSTEINE [Concomitant]

REACTIONS (2)
  - TENDON RUPTURE [None]
  - TENDONITIS [None]
